FAERS Safety Report 15964953 (Version 1)
Quarter: 2019Q1

REPORT INFORMATION
  Report Type: Report from Study
  Country: IT (occurrence: IT)
  Receive Date: 20190215
  Receipt Date: 20190215
  Transmission Date: 20190418
  Serious: Yes (Hospitalization)
  Sender: FDA-Public Use
  Company Number: IT-ACCORD-107264

PATIENT
  Age: 81 Year
  Sex: Male

DRUGS (1)
  1. OXALIPLATIN. [Suspect]
     Active Substance: OXALIPLATIN
     Indication: CHOLANGIOCARCINOMA
     Route: 042

REACTIONS (6)
  - Dyspnoea [Recovered/Resolved]
  - Hypersensitivity [Recovered/Resolved]
  - Acute respiratory failure [Recovered/Resolved]
  - Hypertensive crisis [Recovered/Resolved]
  - Bronchospasm [Recovered/Resolved]
  - Off label use [Unknown]

NARRATIVE: CASE EVENT DATE: 20180427
